FAERS Safety Report 9604398 (Version 2)
Quarter: 2013Q4

REPORT INFORMATION
  Report Type: Spontaneous
  Country: IT (occurrence: IT)
  Receive Date: 20131008
  Receipt Date: 20131010
  Transmission Date: 20140711
  Serious: Yes (Other)
  Sender: FDA-Public Use
  Company Number: IT-RANBAXY-2013RR-73788

PATIENT
  Age: 8 Year
  Sex: Female

DRUGS (2)
  1. AMOXICILLIN [Suspect]
     Indication: COUGH
     Dosage: 1 G COMPLETE
     Route: 048
     Dates: start: 20130905, end: 20130905
  2. LISOMUCIL [Concomitant]
     Indication: COUGH
     Dosage: 10 ML COMPLETE
     Route: 048
     Dates: start: 20130905, end: 20130905

REACTIONS (2)
  - Periorbital oedema [Recovering/Resolving]
  - Urticaria [Recovering/Resolving]
